FAERS Safety Report 12493810 (Version 1)
Quarter: 2016Q2

REPORT INFORMATION
  Report Type: Spontaneous
  Country: US (occurrence: US)
  Receive Date: 20160623
  Receipt Date: 20160623
  Transmission Date: 20160815
  Serious: Yes (Other)
  Sender: FDA-Public Use
  Company Number: US-TEVA-669030USA

PATIENT
  Age: 56 Year
  Sex: Female

DRUGS (1)
  1. ZECUITY [Suspect]
     Active Substance: SUMATRIPTAN SUCCINATE
     Route: 062
     Dates: start: 20160614, end: 20160614

REACTIONS (6)
  - Application site paraesthesia [Unknown]
  - Application site pruritus [Unknown]
  - Application site scab [Unknown]
  - Product physical issue [Unknown]
  - Application site burn [Recovering/Resolving]
  - Application site pain [Unknown]

NARRATIVE: CASE EVENT DATE: 201606
